FAERS Safety Report 5774787-X (Version None)
Quarter: 2008Q2

REPORT INFORMATION
  Report Type: 
  Country: None (occurrence: None)
  Receive Date: 20080616
  Receipt Date: 20080616
  Transmission Date: 20081010
  Serious: Yes (Other)
  Sender: FDA-Public Use
  Company Number: None

PATIENT
  Sex: Female
  Weight: 76.2043 kg

DRUGS (1)
  1. ZETIA [Suspect]
     Indication: BLOOD CHOLESTEROL INCREASED
     Dosage: 10MG. PER DAY 1 PILL PER DAY ORALLY
     Route: 048
     Dates: start: 20070813, end: 20080204

REACTIONS (2)
  - IRRITABILITY [None]
  - MEMORY IMPAIRMENT [None]
